FAERS Safety Report 4310156-7 (Version None)
Quarter: 2004Q1

REPORT INFORMATION
  Report Type: 
  Country: None (occurrence: None)
  Receive Date: 20040301
  Receipt Date: 20040122
  Transmission Date: 20041129
  Serious: No
  Sender: FDA-Public Use
  Company Number: WAES 0401USA01741

PATIENT
  Sex: 0

DRUGS (3)
  1. ZETIA [Suspect]
     Dosage: 10 MG/DAILY PO
     Route: 048
  2. CRESTOR [Concomitant]
  3. LIPITOR [Concomitant]

REACTIONS (2)
  - DRUG INEFFECTIVE [None]
  - HEPATIC ENZYME INCREASED [None]
